FAERS Safety Report 7923965 (Version 2)
Quarter: 2013Q1

REPORT INFORMATION
  Report Type: Spontaneous
  Country: US (occurrence: US)
  Receive Date: 20110502
  Receipt Date: 20130103
  Transmission Date: 20140127
  Serious: No
  Sender: FDA-Public Use
  Company Number: US-BIOGENIDEC-2011BI015691

PATIENT
  Age: 30 Year
  Sex: Female

DRUGS (2)
  1. AVONEX [Suspect]
     Indication: MULTIPLE SCLEROSIS
     Route: 030
     Dates: start: 20100808, end: 20110220
  2. MOTRIN [Concomitant]
     Indication: PREMEDICATION

REACTIONS (10)
  - Joint swelling [Not Recovered/Not Resolved]
  - Multiple sclerosis [Unknown]
  - Fibromyalgia [Not Recovered/Not Resolved]
  - Tendonitis [Not Recovered/Not Resolved]
  - Bursitis [Not Recovered/Not Resolved]
  - Central nervous system lesion [Unknown]
  - Paraesthesia [Recovered/Resolved]
  - Joint stiffness [Not Recovered/Not Resolved]
  - Depression [Not Recovered/Not Resolved]
  - Influenza like illness [Recovered/Resolved]
